FAERS Safety Report 10442582 (Version 1)
Quarter: 2014Q3

REPORT INFORMATION
  Report Type: Spontaneous
  Country: US (occurrence: None)
  Receive Date: 20140908
  Receipt Date: 20140908
  Transmission Date: 20150326
  Serious: Yes (Hospitalization)
  Sender: FDA-Public Use
  Company Number: 2520822

PATIENT
  Age: 8 Year
  Sex: Female

DRUGS (1)
  1. DEFEROXAMINE MESYLATE. [Suspect]
     Active Substance: DEFEROXAMINE MESYLATE
     Indication: IRON OVERLOAD
     Route: 040

REACTIONS (8)
  - Tachycardia [None]
  - Peripheral pulse decreased [None]
  - Mental status changes [None]
  - Device malfunction [None]
  - Face oedema [None]
  - Hypotension [None]
  - Overdose [None]
  - Incorrect drug administration rate [None]
